FAERS Safety Report 23746679 (Version 1)
Quarter: 2024Q2

REPORT INFORMATION
  Report Type: Spontaneous
  Country: US (occurrence: None)
  Receive Date: 20240415
  Receipt Date: 20240415
  Transmission Date: 20240716
  Serious: No
  Sender: FDA-Public Use
  Company Number: None

PATIENT
  Age: 48 Year
  Sex: Male

DRUGS (1)
  1. COSENTYX [Suspect]
     Active Substance: SECUKINUMAB
     Indication: Psoriatic arthropathy
     Dosage: OTHER QUANTITY : 300MG (2 PENS);?FREQUENCY : MONTHLY;?
     Route: 058
     Dates: start: 202312

REACTIONS (6)
  - Nasopharyngitis [None]
  - Nasal congestion [None]
  - Oropharyngeal pain [None]
  - Rhinorrhoea [None]
  - Influenza like illness [None]
  - Injection related reaction [None]
